FAERS Safety Report 5980854-8 (Version None)
Quarter: 2008Q4

REPORT INFORMATION
  Report Type: 
  Country: None (occurrence: None)
  Receive Date: 20081205
  Receipt Date: 20080611
  Transmission Date: 20090506
  Serious: No
  Sender: FDA-Public Use
  Company Number: A0732393A

PATIENT
  Age: 61 Year
  Sex: Female

DRUGS (2)
  1. COMMIT [Suspect]
     Dates: end: 20080608
  2. NICORETTE [Suspect]

REACTIONS (4)
  - ABDOMINAL PAIN UPPER [None]
  - HICCUPS [None]
  - INTENTIONAL DRUG MISUSE [None]
  - TOOTH DISORDER [None]
